FAERS Safety Report 14294020 (Version 1)
Quarter: 2017Q4

REPORT INFORMATION
  Report Type: Spontaneous
  Country: FR (occurrence: FR)
  Receive Date: 20171217
  Receipt Date: 20171217
  Transmission Date: 20180321
  Serious: Yes (Life-Threatening, Hospitalization)
  Sender: FDA-Public Use
  Company Number: FR-CIPLA LTD.-2017FR23696

PATIENT

DRUGS (14)
  1. FLUOROURACIL. [Suspect]
     Active Substance: FLUOROURACIL
     Indication: COLORECTAL CANCER METASTATIC
     Dosage: 3400 MG, CYCLICAL
     Route: 041
     Dates: start: 20150402
  2. SPASFON [Concomitant]
     Active Substance: PHLOROGLUCINOL\1,3,5-TRIMETHOXYBENZENE
     Dosage: UNK
     Route: 065
  3. AFLIBERCEPT [Suspect]
     Active Substance: AFLIBERCEPT
     Dosage: 175 MG, CYCLICAL
     Route: 041
     Dates: start: 20150305, end: 20150305
  4. IRINOTECAN [Suspect]
     Active Substance: IRINOTECAN
     Indication: COLORECTAL CANCER METASTATIC
     Dosage: 255 MG, CYCLICAL
     Route: 041
     Dates: start: 20150402, end: 20150402
  5. FLUOROURACIL. [Suspect]
     Active Substance: FLUOROURACIL
     Dosage: 565 MG, CYCLICAL
     Route: 040
     Dates: start: 20150402, end: 20150402
  6. IRINOTECAN [Suspect]
     Active Substance: IRINOTECAN
     Dosage: 265 MG, CYCLICAL
     Route: 041
     Dates: start: 20150305, end: 20150305
  7. AFLIBERCEPT [Suspect]
     Active Substance: AFLIBERCEPT
     Indication: COLORECTAL CANCER METASTATIC
     Dosage: 165 MG, CYCLICAL
     Route: 041
     Dates: start: 20150402, end: 20150402
  8. LEUCOVORIN. [Suspect]
     Active Substance: LEUCOVORIN
     Dosage: 580 MG, CYCLICAL
     Route: 041
     Dates: start: 20150305, end: 20150305
  9. FLUOROURACIL. [Suspect]
     Active Substance: FLUOROURACIL
     Dosage: 3500 MG, CYCLICAL
     Route: 041
     Dates: start: 20150305
  10. ZOPHREN [Concomitant]
     Active Substance: ONDANSETRON
     Dosage: UNK
     Route: 065
  11. G-CSF [Concomitant]
     Active Substance: GRANULOCYTE COLONY-STIMULATING FACTOR NOS
     Dosage: UNK
     Route: 065
  12. FLUOROURACIL. [Suspect]
     Active Substance: FLUOROURACIL
     Dosage: 580 MG, CYCLICAL
     Route: 040
     Dates: start: 20150305, end: 20150305
  13. KAYEXALATE [Concomitant]
     Active Substance: SODIUM POLYSTYRENE SULFONATE
     Dosage: UNK
     Route: 065
  14. LEUCOVORIN. [Suspect]
     Active Substance: LEUCOVORIN
     Indication: COLORECTAL CANCER METASTATIC
     Dosage: 565 MG, CYCLICAL
     Route: 041
     Dates: start: 20150402, end: 20150402

REACTIONS (3)
  - Tuberculosis [Recovered/Resolved]
  - Sickle cell anaemia [Not Recovered/Not Resolved]
  - Abdominal pain [Recovered/Resolved]

NARRATIVE: CASE EVENT DATE: 20150410
